FAERS Safety Report 19887172 (Version 1)
Quarter: 2021Q3

REPORT INFORMATION
  Report Type: Spontaneous
  Country: GB (occurrence: GB)
  Receive Date: 20210927
  Receipt Date: 20210927
  Transmission Date: 20211014
  Serious: Yes (Death, Life-Threatening, Hospitalization, Other)
  Sender: FDA-Public Use
  Company Number: GB-VELOXIS PHARMACEUTICALS-2021VELGB-000670

PATIENT
  Age: 42 Year
  Sex: Female

DRUGS (2)
  1. TACROLIMUS. [Suspect]
     Active Substance: TACROLIMUS
     Indication: IMMUNOSUPPRESSANT DRUG THERAPY
     Dosage: UNK
  2. DACLIZUMAB [Suspect]
     Active Substance: DACLIZUMAB
     Indication: TRANSPLANT REJECTION
     Dosage: UNK

REACTIONS (11)
  - Brain abscess [Fatal]
  - Embolism [Fatal]
  - Carditis [Fatal]
  - Mitral valve incompetence [Fatal]
  - Lung abscess [Fatal]
  - Renal abscess [Fatal]
  - Bronchopulmonary aspergillosis [Fatal]
  - Nodal arrhythmia [Fatal]
  - Myocardiac abscess [Fatal]
  - Disseminated aspergillosis [Fatal]
  - Thyroid gland abscess [Fatal]
